FAERS Safety Report 15788411 (Version 1)
Quarter: 2019Q1

REPORT INFORMATION
  Report Type: Spontaneous
  Country: US (occurrence: US)
  Receive Date: 20190104
  Receipt Date: 20190104
  Transmission Date: 20190417
  Serious: No
  Sender: FDA-Public Use
  Company Number: US-APOTEX-2018AP011157

PATIENT
  Sex: Female

DRUGS (1)
  1. CALCITONIN SALMON. [Suspect]
     Active Substance: CALCITONIN SALMON
     Indication: PRODUCT USED FOR UNKNOWN INDICATION
     Dosage: UNK
     Route: 065

REACTIONS (8)
  - Anxiety [Unknown]
  - Nasal dryness [Unknown]
  - Nausea [Unknown]
  - Rhinalgia [Unknown]
  - Headache [Unknown]
  - Blood pressure increased [Unknown]
  - Diarrhoea [Unknown]
  - Heart rate increased [Unknown]
